FAERS Safety Report 4647936-4 (Version None)
Quarter: 2005Q2

REPORT INFORMATION
  Report Type: 
  Country: None (occurrence: None)
  Receive Date: 20050428
  Receipt Date: 20050329
  Transmission Date: 20051028
  Serious: Yes (Death, Life-Threatening, Hospitalization)
  Sender: FDA-Public Use
  Company Number: US-KINGPHARMUSA00001-K200500431

PATIENT
  Age: 73 Year
  Sex: Male

DRUGS (8)
  1. ALTACE [Suspect]
     Dosage: 2.5 MG, QD
     Route: 048
     Dates: start: 20050101, end: 20050119
  2. ALTACE [Suspect]
     Dosage: 5 MG, QD
     Route: 048
     Dates: start: 20050120, end: 20050226
  3. NEXIUM [Suspect]
     Dosage: 40 MG, QD
     Route: 048
     Dates: start: 20050222, end: 20050226
  4. AERIUS [Suspect]
     Dosage: 1 U, QD
     Route: 048
     Dates: start: 20050222, end: 20050226
  5. ZYLORIC ^FAES^ [Suspect]
     Dosage: 1 U, QD
     Route: 048
     Dates: end: 20050226
  6. LASILIX [Concomitant]
     Dosage: 40 MG, QD
     Route: 048
     Dates: start: 20040601
  7. KARDEGIC  FRA/ [Concomitant]
     Dosage: 160 MG, QD
     Route: 048
     Dates: start: 20030401
  8. TENORMIN [Concomitant]
     Dosage: 50 MG, QD
     Route: 048

REACTIONS (11)
  - AGRANULOCYTOSIS [None]
  - BONE MARROW DEPRESSION [None]
  - BRONCHITIS [None]
  - C-REACTIVE PROTEIN INCREASED [None]
  - CARDIAC ARREST [None]
  - CARDIO-RESPIRATORY ARREST [None]
  - DYSPNOEA [None]
  - RESPIRATORY FAILURE [None]
  - SEPTIC SHOCK [None]
  - SHOCK [None]
  - WHITE BLOOD CELL ANALYSIS DECREASED [None]
